FAERS Safety Report 5471170-1 (Version None)
Quarter: 2007Q3

REPORT INFORMATION
  Report Type: 
  Country: None (occurrence: None)
  Receive Date: 20070925
  Receipt Date: 20070913
  Transmission Date: 20080115
  Serious: Yes (Hospitalization)
  Sender: FDA-Public Use
  Company Number: 2007BI019588

PATIENT
  Age: 41 Year
  Sex: Female

DRUGS (1)
  1. AVONEX [Suspect]
     Indication: MULTIPLE SCLEROSIS
     Dosage: 30 QG;QW;IM
     Route: 030
     Dates: start: 20060821

REACTIONS (3)
  - BENIGN VAGINAL NEOPLASM [None]
  - HAEMORRHAGE [None]
  - RESPIRATORY ARREST [None]
